FAERS Safety Report 9244962 (Version 1)
Quarter: 2013Q1

REPORT INFORMATION
  Report Type: Spontaneous
  Country: US (occurrence: None)
  Receive Date: 20121130
  Receipt Date: 20121130
  Transmission Date: 20140127
  Serious: Yes (Other)
  Sender: FDA-Public Use
  Company Number: PHEH2011US010852

PATIENT
  Age: 84 Year
  Sex: Female

DRUGS (8)
  1. TEKTURNA [Concomitant]
     Dosage: 1 DF(150MG), PER DAY
  2. SERTRALINE (SERTRALINE) [Concomitant]
  3. LANOXIN (DIGOXIN) [Concomitant]
  4. OMEPRAZOLE (OMEPRAZOLE0 [Concomitant]
  5. NAMENDA (MEMANTINE HYDROCHLORIDE) [Concomitant]
  6. PLAVIX (CLOPIDOGREL SULFATE) [Concomitant]
  7. ALEVE/00256202/(NAPROXEN SODIUM) [Concomitant]
  8. HYDROCHLOROTHIAZIDE (HYDROCHLOROTHIAZIDE) [Concomitant]

REACTIONS (1)
  - Hypertension [None]
